FAERS Safety Report 14774845 (Version 1)
Quarter: 2018Q2

REPORT INFORMATION
  Report Type: Spontaneous
  Country: US (occurrence: US)
  Receive Date: 20180418
  Receipt Date: 20180418
  Transmission Date: 20180711
  Serious: No
  Sender: FDA-Public Use
  Company Number: US-ASTELLAS-2018US003835

PATIENT
  Age: 77 Year
  Sex: Female

DRUGS (1)
  1. LEXISCAN [Suspect]
     Active Substance: REGADENOSON
     Indication: CARDIAC STRESS TEST
     Dosage: UNK, OTHER
     Route: 065
     Dates: start: 20180117, end: 20180117

REACTIONS (3)
  - Posture abnormal [Unknown]
  - Abdominal discomfort [Unknown]
  - Flatulence [Unknown]
